FAERS Safety Report 5501138-8 (Version None)
Quarter: 2007Q4

REPORT INFORMATION
  Report Type: 
  Country: None (occurrence: None)
  Receive Date: 20071029
  Receipt Date: 20071017
  Transmission Date: 20080405
  Serious: Yes (Hospitalization)
  Sender: FDA-Public Use
  Company Number: GB-PFIZER INC-2007082300

PATIENT
  Sex: Female

DRUGS (5)
  1. ISTIN [Suspect]
     Indication: HYPERTENSION
     Route: 048
     Dates: start: 20060510, end: 20070919
  2. ACETAMINOPHEN [Concomitant]
     Indication: PAIN
     Dosage: DAILY DOSE:4GRAM-FREQ:FOUR TIMES
     Route: 048
  3. ALENDRONATE SODIUM [Concomitant]
     Indication: OSTEOPOROSIS
     Route: 048
  4. CALCICHEW-D3 [Concomitant]
     Indication: OSTEOPOROSIS
     Dosage: TEXT:1 DF-FREQ:BID
     Route: 048
  5. DALTEPARIN SODIUM [Concomitant]
     Indication: PROPHYLAXIS
     Dosage: DAILY DOSE:2500I.U.
     Route: 058
     Dates: start: 20070830, end: 20070919

REACTIONS (3)
  - BREAST DISCHARGE [None]
  - FRACTURE [None]
  - HYPOTENSION [None]
